FAERS Safety Report 6552574-2 (Version None)
Quarter: 2010Q1

REPORT INFORMATION
  Report Type: 
  Country: None (occurrence: None)
  Receive Date: 20100126
  Receipt Date: 20100118
  Transmission Date: 20100710
  Serious: Yes (Other)
  Sender: FDA-Public Use
  Company Number: GB-PFIZER INC-2010006354

PATIENT
  Age: 77 Year
  Sex: Male
  Weight: 91.7 kg

DRUGS (5)
  1. CELECOXIB [Suspect]
     Dosage: 400 MG, UNK
     Route: 048
     Dates: start: 20090818, end: 20090929
  2. ZOLEDRONIC ACID [Suspect]
     Dosage: 4 MG, UNK
     Route: 042
     Dates: start: 20090818
  3. SIMVASTATIN [Concomitant]
     Dosage: 40 MG, UNK
     Route: 048
     Dates: start: 20060501
  4. DOXAZOSIN [Concomitant]
     Dosage: 2 MG, UNK
     Route: 048
     Dates: start: 20061101
  5. DUTASTERIDE [Concomitant]
     Dosage: 500 UG, UNK
     Route: 048
     Dates: start: 20061101

REACTIONS (6)
  - APHASIA [None]
  - BALANCE DISORDER [None]
  - CEREBRAL ATROPHY [None]
  - DYSGEUSIA [None]
  - MICROANGIOPATHY [None]
  - TRANSIENT ISCHAEMIC ATTACK [None]
